FAERS Safety Report 5977958-2 (Version None)
Quarter: 2008Q4

REPORT INFORMATION
  Report Type: 
  Country: None (occurrence: None)
  Receive Date: 20081203
  Receipt Date: 20081127
  Transmission Date: 20090506
  Serious: Yes (Other)
  Sender: FDA-Public Use
  Company Number: JP-B.I. PHARMACEUTICALS,INC./RIDGEFIELD-2008-BP-08513NB

PATIENT
  Sex: Male
  Weight: 66 kg

DRUGS (2)
  1. MICARDIS [Suspect]
     Indication: HYPERTENSION
     Dosage: 40MG
     Route: 048
     Dates: start: 20060522
  2. ADALAT [Concomitant]
     Indication: HYPERTENSION
     Dosage: 20MG
     Route: 048
     Dates: start: 20011229

REACTIONS (3)
  - BENIGN PROSTATIC HYPERPLASIA [None]
  - CYSTITIS [None]
  - RENAL FAILURE ACUTE [None]
